FAERS Safety Report 8766952 (Version 1)
Quarter: 2012Q4

REPORT INFORMATION
  Report Type: 
  Country: US (occurrence: US)
  Receive Date: 20120904
  Receipt Date: 20120904
  Transmission Date: 20130627
  Serious: Yes (Death, Other)
  Sender: FDA-Public Use
  Company Number: US-JNJFOC-20120814604

PATIENT
  Age: 67 Year
  Sex: Male

DRUGS (1)
  1. REMICADE [Suspect]
     Indication: CROHN^S DISEASE
     Route: 042

REACTIONS (4)
  - Post procedural complication [Fatal]
  - Pancreatic carcinoma [Unknown]
  - Renal cancer [Unknown]
  - Dementia [Unknown]
